FAERS Safety Report 7374471-5 (Version None)
Quarter: 2011Q1

REPORT INFORMATION
  Report Type: 
  Country: None (occurrence: None)
  Receive Date: 20110325
  Receipt Date: 20110103
  Transmission Date: 20110831
  Serious: No
  Sender: FDA-Public Use
  Company Number: US-MYLANLABS-2011S1000317

PATIENT
  Age: 62 Year
  Sex: Female

DRUGS (6)
  1. FENTANYL-100 [Suspect]
     Indication: NEOPLASM MALIGNANT
     Dates: start: 20101230, end: 20101231
  2. METOPROLOL [Concomitant]
     Route: 048
  3. FENTANYL-100 [Suspect]
     Dates: start: 20110101
  4. PLAVIX [Concomitant]
     Route: 048
  5. OXYCODONE [Concomitant]
     Indication: BREAKTHROUGH PAIN
     Route: 048
  6. LIPITOR [Concomitant]
     Route: 048

REACTIONS (2)
  - SWELLING FACE [None]
  - EYE SWELLING [None]
